FAERS Safety Report 12181833 (Version 3)
Quarter: 2016Q3

REPORT INFORMATION
  Report Type: Spontaneous
  Country: US (occurrence: US)
  Receive Date: 20160315
  Receipt Date: 20160817
  Transmission Date: 20161109
  Serious: Yes (Other)
  Sender: FDA-Public Use
  Company Number: US-ASTRAZENECA-2016SE25446

PATIENT
  Age: 824 Month
  Sex: Female
  Weight: 131.5 kg

DRUGS (20)
  1. MOVANTIK [Suspect]
     Active Substance: NALOXEGOL OXALATE
     Indication: CONSTIPATION
     Route: 048
     Dates: start: 201510
  2. METHENAMINE HIPP TAB [Concomitant]
     Indication: INFECTION
     Route: 048
  3. FUROSEMIDE. [Concomitant]
     Active Substance: FUROSEMIDE
     Indication: OEDEMA PERIPHERAL
     Route: 048
  4. SIMVASTATIN. [Concomitant]
     Active Substance: SIMVASTATIN
     Indication: BLOOD CHOLESTEROL ABNORMAL
     Route: 048
  5. SAVELLA [Concomitant]
     Active Substance: MILNACIPRAN HYDROCHLORIDE
     Indication: BLOOD PRESSURE ABNORMAL
     Route: 048
  6. LINZESS [Concomitant]
     Active Substance: LINACLOTIDE
     Indication: ABDOMINAL DISCOMFORT
     Route: 048
  7. SODIUM BICARBONATE. [Concomitant]
     Active Substance: SODIUM BICARBONATE
     Indication: HIATUS HERNIA
     Dosage: TWO TIMES A DAY
  8. CELCOXIB [Concomitant]
     Indication: RHEUMATOID ARTHRITIS
     Route: 048
  9. METOLACONE [Concomitant]
     Indication: FIBROMYALGIA
     Route: 048
  10. AMITIZA [Concomitant]
     Active Substance: LUBIPROSTONE
     Indication: GASTROINTESTINAL DISORDER
     Dosage: TWO TIMES A DAY
     Route: 048
  11. XANAX [Concomitant]
     Active Substance: ALPRAZOLAM
     Indication: PANIC ATTACK
     Dosage: 2.0MG AS REQUIRED
     Route: 048
  12. HYDROCODONE [Concomitant]
     Active Substance: HYDROCODONE
     Dosage: 10/325MG 1 EVERY SIX HOURS AS NEEDED FOR PAIN IN KNEES FROM FALLS
  13. ONDANSETRON [Concomitant]
     Active Substance: ONDANSETRON
     Indication: NAUSEA
     Dosage: 4.0MG AS REQUIRED
     Route: 048
  14. OMEPRAZOLE. [Suspect]
     Active Substance: OMEPRAZOLE
     Indication: HIATUS HERNIA
     Route: 048
  15. FETCIMA [Concomitant]
     Indication: ILL-DEFINED DISORDER
     Route: 048
  16. MOVANTIK [Suspect]
     Active Substance: NALOXEGOL OXALATE
     Indication: BOWEL MOVEMENT IRREGULARITY
     Route: 048
     Dates: start: 201510
  17. VITAMIN D [Concomitant]
     Active Substance: CHOLECALCIFEROL
     Indication: VITAMIN D DECREASED
     Route: 048
  18. GABAPENTIN. [Concomitant]
     Active Substance: GABAPENTIN
     Indication: FIBROMYALGIA
     Dosage: 800.0MG AS REQUIRED
     Route: 048
  19. CENTRUM SILVER VITAMIN [Concomitant]
     Indication: ASTHENIA
     Dosage: 1 DAILY
     Route: 048
     Dates: start: 201603
  20. 3 VITAMIN COMPOUND [Concomitant]
     Indication: HYPOVITAMINOSIS
     Dosage: 1 DAILY
     Route: 048

REACTIONS (13)
  - Infrequent bowel movements [Unknown]
  - Inflammation [Unknown]
  - Incontinence [Not Recovered/Not Resolved]
  - Nausea [Unknown]
  - Product use issue [Unknown]
  - Gait disturbance [Unknown]
  - Confusional state [Not Recovered/Not Resolved]
  - Neoplasm malignant [Unknown]
  - Hiatus hernia [Not Recovered/Not Resolved]
  - Fear of falling [Unknown]
  - Fall [Unknown]
  - Arthralgia [Unknown]
  - Stress [Not Recovered/Not Resolved]

NARRATIVE: CASE EVENT DATE: 201603
